FAERS Safety Report 9629027 (Version 1)
Quarter: 2013Q4

REPORT INFORMATION
  Report Type: Spontaneous
  Country: US (occurrence: US)
  Receive Date: 20131017
  Receipt Date: 20131017
  Transmission Date: 20140711
  Serious: Yes (Other)
  Sender: FDA-Public Use
  Company Number: US-SA-2013SA101855

PATIENT
  Sex: Female

DRUGS (21)
  1. ARAVA [Suspect]
     Route: 065
  2. LYRICA [Concomitant]
     Indication: FIBROMYALGIA
     Route: 065
  3. SERTRALINE HYDROCHLORIDE [Concomitant]
     Indication: ANXIETY
     Route: 065
  4. KLONOPIN [Concomitant]
     Indication: ANXIETY
     Dosage: 1/2 PILL TWICE DAILY
     Route: 065
  5. TRILEPTAL [Concomitant]
     Indication: CONVULSION
     Route: 065
  6. ISONIAZID [Concomitant]
     Indication: LATENT TUBERCULOSIS
     Route: 065
  7. CELEBREX [Concomitant]
     Indication: RHEUMATOID ARTHRITIS
     Route: 065
  8. VICODIN [Concomitant]
     Indication: RHEUMATOID ARTHRITIS
     Dosage: DOSE:-7.5/500.1-2 PILLS EVERY 8 HRS
     Route: 065
  9. ZANAFLEX [Concomitant]
     Indication: FIBROMYALGIA
     Dosage: 4 MG PILL AT BED PRN
     Route: 065
  10. COUMADIN [Concomitant]
     Indication: COAGULOPATHY
     Dosage: FRQUENCY:- 1 PILL DAILY THREE TIMES A DAY?1.5 PIIL DAILY
     Route: 065
  11. IRON [Concomitant]
     Indication: ANAEMIA
     Route: 065
  12. COLACE [Concomitant]
     Indication: IRRITABLE BOWEL SYNDROME
     Route: 065
  13. OMEPRAZOLE [Concomitant]
     Indication: IRRITABLE BOWEL SYNDROME
     Route: 065
  14. CLIDINIUM [Concomitant]
     Indication: IRRITABLE BOWEL SYNDROME
     Dosage: 3-4 TIMES WHEN NEEDED
     Route: 065
  15. PREVACID [Concomitant]
     Indication: GASTROOESOPHAGEAL REFLUX DISEASE
     Route: 065
  16. ZYRTEC [Concomitant]
     Indication: HYPERSENSITIVITY
     Route: 065
  17. FLONASE [Concomitant]
     Indication: HYPERSENSITIVITY
     Dosage: 2 DAILY
     Route: 065
  18. XOPENEX [Concomitant]
     Indication: ASTHMA
     Route: 065
  19. DILANTIN [Concomitant]
  20. FLAGYL [Concomitant]
  21. VITAMIN B6 [Concomitant]
     Indication: LATENT TUBERCULOSIS

REACTIONS (2)
  - Irritable bowel syndrome [Unknown]
  - Haemorrhage [Unknown]
